FAERS Safety Report 13804175 (Version 1)
Quarter: 2017Q3

REPORT INFORMATION
  Report Type: Spontaneous
  Country: US (occurrence: US)
  Receive Date: 20170728
  Receipt Date: 20170728
  Transmission Date: 20171127
  Serious: Yes (Other)
  Sender: FDA-Public Use
  Company Number: US-MYLANLABS-2016M1031513

PATIENT
  Sex: Male

DRUGS (1)
  1. CIPROFLOXACIN TABLETS, USP [Suspect]
     Active Substance: CIPROFLOXACIN
     Dosage: UNK
     Dates: end: 2016

REACTIONS (1)
  - Hypersensitivity [Not Recovered/Not Resolved]
